FAERS Safety Report 22073491 (Version 1)
Quarter: 2023Q1

REPORT INFORMATION
  Report Type: Report from Study
  Country: FI (occurrence: FI)
  Receive Date: 20230308
  Receipt Date: 20230308
  Transmission Date: 20230418
  Serious: Yes (Other)
  Sender: FDA-Public Use
  Company Number: FI-MYLANLABS-2023M1017516

PATIENT
  Age: 25 Year
  Sex: Male

DRUGS (5)
  1. CLOZAPINE [Suspect]
     Active Substance: CLOZAPINE
     Indication: Bipolar disorder
     Dosage: UNK
     Route: 065
     Dates: start: 20230126, end: 202302
  2. CLOZAPINE [Suspect]
     Active Substance: CLOZAPINE
     Dosage: 150 MILLIGRAM, QD, START DATE:UNKNOWN DATE IN FEB-2023
     Route: 065
     Dates: end: 20230210
  3. CLOZAPINE [Suspect]
     Active Substance: CLOZAPINE
     Dosage: 75 MILLIGRAM, QD, 75 MG 1X1 [ONCE PER DAY]
     Route: 065
     Dates: start: 20230210, end: 20230217
  4. CLOZAPINE [Suspect]
     Active Substance: CLOZAPINE
     Dosage: 150 MILLIGRAM, QD, 150 MG 1X1 [ONCE A DAY]
     Route: 065
     Dates: start: 20230217
  5. LITHIUM CARBONATE [Concomitant]
     Active Substance: LITHIUM CARBONATE
     Indication: Bipolar disorder
     Dosage: 900 MILLIGRAM
     Route: 065

REACTIONS (8)
  - Pneumonia [Recovered/Resolved]
  - Flank pain [Unknown]
  - Liver function test increased [Recovering/Resolving]
  - Alanine aminotransferase increased [Recovering/Resolving]
  - Aspartate aminotransferase increased [Recovering/Resolving]
  - Gamma-glutamyltransferase increased [Recovering/Resolving]
  - Pyrexia [Unknown]
  - Off label use [Unknown]

NARRATIVE: CASE EVENT DATE: 20230126
